FAERS Safety Report 21168568 (Version 12)
Quarter: 2024Q3

REPORT INFORMATION
  Report Type: Report from Study
  Country: BE (occurrence: BE)
  Receive Date: 20220803
  Receipt Date: 20240829
  Transmission Date: 20241017
  Serious: No
  Sender: ROCHE
  Company Number: BE-ROCHE-3152751

PATIENT
  Age: 58 Year
  Sex: Female
  Weight: 84.0 kg

DRUGS (49)
  1. OCRELIZUMAB [Suspect]
     Active Substance: OCRELIZUMAB
     Indication: Relapsing-remitting multiple sclerosis
     Dosage: TOTAL VOLUME PRIOR AE: 500 ML
     Route: 042
     Dates: start: 20191009, end: 20191009
  2. OCRELIZUMAB [Suspect]
     Active Substance: OCRELIZUMAB
     Dosage: TOTAL VOLUME ADMINISTERED: 500 ML
     Route: 042
     Dates: start: 20230206, end: 20230206
  3. OCRELIZUMAB [Suspect]
     Active Substance: OCRELIZUMAB
     Dosage: TOTAL VOLUME ADMINISTERED: 500 ML
     Route: 042
     Dates: start: 20240122, end: 20240122
  4. OCRELIZUMAB [Suspect]
     Active Substance: OCRELIZUMAB
     Dosage: TOTAL VOLUME ADMINISTERED: 500 ML
     Route: 042
     Dates: start: 20200604, end: 20200604
  5. OCRELIZUMAB [Suspect]
     Active Substance: OCRELIZUMAB
     Dosage: TOTAL VOLUME ADMINISTERED: 250 ML
     Route: 042
     Dates: start: 20191023, end: 20191023
  6. OCRELIZUMAB [Suspect]
     Active Substance: OCRELIZUMAB
     Dosage: TOTAL VOLUME ADMINISTERED: 500 ML
     Route: 042
     Dates: start: 20210301, end: 20210301
  7. OCRELIZUMAB [Suspect]
     Active Substance: OCRELIZUMAB
     Dosage: TOTAL VOLUME ADMINISTERED: 500 ML
     Route: 042
     Dates: start: 20220808, end: 20220808
  8. OCRELIZUMAB [Suspect]
     Active Substance: OCRELIZUMAB
     Dosage: TOTAL VOLUME ADMINISTERED: 500 ML
     Route: 042
     Dates: start: 20230807, end: 20230807
  9. OCRELIZUMAB [Suspect]
     Active Substance: OCRELIZUMAB
     Dosage: TOTAL VOLUME ADMINISTERED: 500 ML
     Route: 042
     Dates: start: 20211108, end: 20211108
  10. OCRELIZUMAB [Suspect]
     Active Substance: OCRELIZUMAB
     Route: 042
  11. OCRELIZUMAB [Suspect]
     Active Substance: OCRELIZUMAB
     Route: 042
     Dates: start: 20240715, end: 20240715
  12. ASPIRIN [Concomitant]
     Active Substance: ASPIRIN
     Route: 048
     Dates: start: 20150903
  13. FOLIC ACID [Concomitant]
     Active Substance: FOLIC ACID
     Indication: COVID-19
     Route: 048
     Dates: start: 20200604
  14. GILENYA [Concomitant]
     Active Substance: FINGOLIMOD HYDROCHLORIDE
     Route: 048
     Dates: start: 20150522
  15. GILENYA [Concomitant]
     Active Substance: FINGOLIMOD HYDROCHLORIDE
     Dosage: FREQUENCY TEXT:ONCE BEFORE INFUSION
     Route: 042
     Dates: start: 20220808, end: 20220808
  16. JARDIANCE [Concomitant]
     Active Substance: EMPAGLIFLOZIN
     Route: 048
     Dates: start: 20210709
  17. VALTRAN (BELGIUM) [Concomitant]
     Route: 048
     Dates: start: 20120713
  18. GLICLAZIDE [Concomitant]
     Active Substance: GLICLAZIDE
     Route: 048
     Dates: start: 20210709, end: 20230207
  19. GLICLAZIDE [Concomitant]
     Active Substance: GLICLAZIDE
     Route: 048
     Dates: start: 20230207
  20. ACETAMINOPHEN\TRAMADOL HYDROCHLORIDE [Concomitant]
     Active Substance: ACETAMINOPHEN\TRAMADOL HYDROCHLORIDE
     Route: 048
     Dates: start: 20210901
  21. SIMVASTATIN [Concomitant]
     Active Substance: SIMVASTATIN
     Route: 048
     Dates: start: 20180411
  22. TRAMADOL HYDROCHLORIDE [Concomitant]
     Active Substance: TRAMADOL HYDROCHLORIDE
     Route: 048
     Dates: start: 20211103, end: 20220307
  23. JANUVIA [Concomitant]
     Active Substance: SITAGLIPTIN PHOSPHATE
     Route: 048
     Dates: start: 20210409
  24. LISINOPRIL [Concomitant]
     Active Substance: LISINOPRIL
     Dosage: 2.5 TABLET
     Route: 048
     Dates: start: 20211112
  25. METFORMIN [Concomitant]
     Active Substance: METFORMIN HYDROCHLORIDE
     Route: 048
     Dates: start: 20210709
  26. SOLU-CORTEF [Concomitant]
     Active Substance: HYDROCORTISONE SODIUM SUCCINATE
     Dosage: FREQUENCY TEXT:ONCE BEFORE INFUSION
     Route: 042
     Dates: start: 20220808, end: 20220808
  27. CETIRIZINE HYDROCHLORIDE [Concomitant]
     Active Substance: CETIRIZINE HYDROCHLORIDE
     Dosage: FREQUENCY TEXT:ONCE BEFORE INFUSION
     Route: 048
     Dates: start: 20220808, end: 20220808
  28. CETIRIZINE HYDROCHLORIDE [Concomitant]
     Active Substance: CETIRIZINE HYDROCHLORIDE
     Dosage: FREQUENCY TEXT:ONCE BEFORE INFUSION
     Route: 048
     Dates: start: 20240122, end: 20240122
  29. CETIRIZINE HYDROCHLORIDE [Concomitant]
     Active Substance: CETIRIZINE HYDROCHLORIDE
     Dosage: FREQUENCY TEXT:ONCE BEFORE INFUSION
     Route: 048
     Dates: start: 20230206, end: 20230206
  30. CETIRIZINE HYDROCHLORIDE [Concomitant]
     Active Substance: CETIRIZINE HYDROCHLORIDE
     Dosage: FREQUENCY TEXT:ONCE BEFORE INFUSION
     Route: 048
     Dates: start: 20230807, end: 20230807
  31. DAFALGAN [Concomitant]
     Active Substance: ACETAMINOPHEN
     Dosage: FREQUENCY TEXT:ONCE BEFORE INFUSION
     Route: 048
     Dates: start: 20220808, end: 20220808
  32. CONTRAMAL RETARD [Concomitant]
     Route: 048
     Dates: start: 20210630
  33. IBUPROFEN [Concomitant]
     Active Substance: IBUPROFEN
     Route: 048
  34. ACETAMINOPHEN [Concomitant]
     Active Substance: ACETAMINOPHEN
     Dosage: FREQUENCY TEXT:ONCE BEFORE INFUSION
     Route: 048
     Dates: start: 20230206, end: 20230206
  35. ACETAMINOPHEN [Concomitant]
     Active Substance: ACETAMINOPHEN
     Dosage: FREQUENCY TEXT:ONCE BEFORE INFUSION
     Route: 048
     Dates: start: 20230807, end: 20230807
  36. ACETAMINOPHEN [Concomitant]
     Active Substance: ACETAMINOPHEN
     Dosage: FREQUENCY TEXT:ONCE BEFORE INFUSION
     Route: 048
     Dates: start: 20240122, end: 20240122
  37. ACETAMINOPHEN [Concomitant]
     Active Substance: ACETAMINOPHEN
     Route: 048
     Dates: start: 20240715, end: 20240715
  38. CETIRIZINE [Concomitant]
     Active Substance: CETIRIZINE HYDROCHLORIDE
     Dosage: FREQUENCY TEXT:ONCE BEFORE INFUSION
     Route: 048
     Dates: start: 20230206, end: 20230206
  39. CETIRIZINE [Concomitant]
     Active Substance: CETIRIZINE HYDROCHLORIDE
     Dosage: FREQUENCY TEXT:ONCE BEFORE INFUSION
     Route: 048
     Dates: start: 20230807, end: 20230807
  40. CETIRIZINE [Concomitant]
     Active Substance: CETIRIZINE HYDROCHLORIDE
     Dosage: FREQUENCY TEXT:ONCE BEFORE INFUSION
     Route: 048
     Dates: start: 20240122, end: 20240122
  41. CETIRIZINE [Concomitant]
     Active Substance: CETIRIZINE HYDROCHLORIDE
     Dosage: FREQUENCY TEXT:ONCE BEFORE INFUSION
     Route: 048
     Dates: start: 20220808, end: 20220808
  42. CETIRIZINE [Concomitant]
     Active Substance: CETIRIZINE HYDROCHLORIDE
     Route: 048
     Dates: start: 20240715, end: 20240715
  43. HYDROCORTISONE [Concomitant]
     Active Substance: HYDROCORTISONE\HYDROCORTISONE ACETATE
     Dosage: FREQUENCY TEXT:ONCE BEFORE INFUSION
     Route: 042
     Dates: start: 20230206, end: 20230206
  44. HYDROCORTISONE [Concomitant]
     Active Substance: HYDROCORTISONE\HYDROCORTISONE ACETATE
     Dosage: FREQUENCY TEXT:ONCE BEFORE INFUSION
     Route: 042
     Dates: start: 20230807, end: 20230807
  45. LANTUS [Concomitant]
     Active Substance: INSULIN GLARGINE
     Dosage: 4 U
     Route: 058
     Dates: start: 20230207, end: 20230320
  46. LANTUS [Concomitant]
     Active Substance: INSULIN GLARGINE
     Dosage: 1 U
     Route: 058
     Dates: start: 20230320, end: 20230320
  47. METHYLPREDNISOLONE [Concomitant]
     Active Substance: METHYLPREDNISOLONE
     Dosage: FREQUENCY TEXT:ONCE BEFORE INFUSION
     Route: 042
     Dates: start: 20240122, end: 20240122
  48. METHYLPREDNISOLONE [Concomitant]
     Active Substance: METHYLPREDNISOLONE
     Route: 042
     Dates: start: 20240715, end: 20240715
  49. SIMVASTATIN [Concomitant]
     Active Substance: SIMVASTATIN
     Route: 048
     Dates: start: 20200129

REACTIONS (2)
  - COVID-19 [Recovered/Resolved]
  - Restless legs syndrome [Recovering/Resolving]

NARRATIVE: CASE EVENT DATE: 20220307
